FAERS Safety Report 20196417 (Version 1)
Quarter: 2021Q4

REPORT INFORMATION
  Report Type: Spontaneous
  Country: US (occurrence: US)
  Receive Date: 20211216
  Receipt Date: 20211216
  Transmission Date: 20220303
  Serious: No
  Sender: FDA-Public Use
  Company Number: US-PFIZER INC-202101604364

PATIENT
  Age: 70 Year
  Sex: Male
  Weight: 106.59 kg

DRUGS (1)
  1. PREGABALIN [Suspect]
     Active Substance: PREGABALIN
     Indication: Neuropathy peripheral
     Dosage: 100 MG, 3X/DAY

REACTIONS (5)
  - Drug ineffective [Unknown]
  - Gait inability [Unknown]
  - Neuralgia [Unknown]
  - Pain in extremity [Unknown]
  - Dysstasia [Unknown]
